FAERS Safety Report 8062585-6 (Version None)
Quarter: 2012Q1

REPORT INFORMATION
  Report Type: 
  Country: None (occurrence: None)
  Receive Date: 20120117
  Receipt Date: 20120109
  Transmission Date: 20120608
  Serious: Yes (Hospitalization)
  Sender: FDA-Public Use
  Company Number: 2012MA000511

PATIENT
  Age: 30 Year
  Sex: Female

DRUGS (7)
  1. CALCIUM [Concomitant]
  2. METRONIDAZOLE [Concomitant]
  3. CHOLECALCIFEROL [Concomitant]
  4. MESALAMINE [Concomitant]
  5. CORTICOSTEROIDS [Concomitant]
  6. PANTOPRAZOLE SODIUM [Suspect]
     Indication: DYSPEPSIA
     Dosage: 40 MG;QD
  7. MERCAPTOPURINE [Concomitant]

REACTIONS (9)
  - BLOOD PRESSURE INCREASED [None]
  - MUSCLE SPASMS [None]
  - HELICOBACTER GASTRITIS [None]
  - BLOOD CALCIUM DECREASED [None]
  - HYPOAESTHESIA [None]
  - HEADACHE [None]
  - HYPOMAGNESAEMIA [None]
  - PARAESTHESIA [None]
  - TETANY [None]
